FAERS Safety Report 5415233-5 (Version None)
Quarter: 2007Q3

REPORT INFORMATION
  Report Type: 
  Country: None (occurrence: None)
  Receive Date: 20070815
  Receipt Date: 20070807
  Transmission Date: 20080115
  Serious: Yes (Death)
  Sender: FDA-Public Use
  Company Number: AU-AMGEN-US231459

PATIENT
  Sex: Female
  Weight: 71 kg

DRUGS (8)
  1. ARANESP [Suspect]
     Indication: DIALYSIS
     Route: 058
     Dates: start: 20041101, end: 20050701
  2. CALTRATE [Concomitant]
     Dates: start: 20000101
  3. CALCITRIOL [Concomitant]
     Dates: start: 20030101
  4. SLOW-K [Concomitant]
     Dates: start: 20040101
  5. THYROXIN [Concomitant]
  6. IRON [Concomitant]
     Route: 048
     Dates: start: 20041101
  7. VENLAFAXINE HCL [Concomitant]
  8. MAGNESIUM SULFATE [Concomitant]

REACTIONS (5)
  - DEATH [None]
  - DIARRHOEA [None]
  - GENERAL PHYSICAL HEALTH DETERIORATION [None]
  - HAEMOGLOBIN DECREASED [None]
  - MENTAL IMPAIRMENT [None]
